FAERS Safety Report 5444926-9 (Version None)
Quarter: 2007Q3

REPORT INFORMATION
  Report Type: 
  Country: None (occurrence: None)
  Receive Date: 20070906
  Receipt Date: 20070829
  Transmission Date: 20080115
  Serious: Yes (Hospitalization)
  Sender: FDA-Public Use
  Company Number: B0485157A

PATIENT
  Age: 95 Year
  Sex: Female

DRUGS (7)
  1. PAROXETINE HCL [Suspect]
     Dosage: 10MG PER DAY
     Route: 048
     Dates: start: 20060515, end: 20070324
  2. ZOPICLONE [Suspect]
     Dosage: .5TAB PER DAY
     Route: 048
     Dates: start: 20070715
  3. TRIATEC [Concomitant]
     Dosage: 1.25MG PER DAY
     Route: 048
     Dates: start: 20060501
  4. NITRODERM [Concomitant]
     Dosage: 1.25MG PER DAY
     Route: 062
     Dates: start: 20060501
  5. PARACETAMOL [Concomitant]
     Route: 065
  6. OROCAL VIT D3 [Concomitant]
     Route: 065
  7. FORLAX [Concomitant]
     Route: 065

REACTIONS (2)
  - FALL [None]
  - VENTRICULAR EXTRASYSTOLES [None]
